FAERS Safety Report 8543709-0 (Version None)
Quarter: 2012Q3

REPORT INFORMATION
  Report Type: 
  Country: None (occurrence: None)
  Receive Date: 20120719
  Receipt Date: 20120719
  Transmission Date: 20120928
  Serious: Yes (Hospitalization)
  Sender: FDA-Public Use
  Company Number: None

PATIENT
  Sex: Female
  Weight: 71.2147 kg

DRUGS (3)
  1. AVASTIN [Suspect]
     Indication: GLIOBLASTOMA MULTIFORME
     Dosage: 750 MG Q 14 DAYS IV DRIP
     Route: 041
     Dates: start: 20100420, end: 20120529
  2. EXTERNAL RADIATION [Concomitant]
  3. TEMOZOLOMIDE [Concomitant]

REACTIONS (3)
  - NAUSEA [None]
  - VOMITING [None]
  - CONVULSION [None]
